FAERS Safety Report 8927870 (Version 1)
Quarter: 2012Q4

REPORT INFORMATION
  Report Type: 
  Country: GB (occurrence: GB)
  Receive Date: 20121127
  Receipt Date: 20121127
  Transmission Date: 20130627
  Serious: Yes (Other)
  Sender: FDA-Public Use
  Company Number: GB-ELI_LILLY_AND_COMPANY-GB201211004348

PATIENT
  Age: 23 Year
  Sex: Female

DRUGS (3)
  1. FLUOXETINE [Suspect]
     Indication: DEPRESSION
     Dosage: 20 mg, qd
     Dates: start: 201107
  2. CO-CODAMOL [Concomitant]
  3. ANALGESICS [Concomitant]

REACTIONS (7)
  - Delusion [Recovered/Resolved]
  - Personality disorder [Recovered/Resolved]
  - Anxiety [Recovered/Resolved]
  - Nightmare [Recovered/Resolved]
  - Drug ineffective [Recovered/Resolved]
  - Product quality issue [None]
  - Product substitution issue [None]
